FAERS Safety Report 8474865-0 (Version None)
Quarter: 2012Q2

REPORT INFORMATION
  Report Type: 
  Country: None (occurrence: None)
  Receive Date: 20120628
  Receipt Date: 20120621
  Transmission Date: 20120825
  Serious: Yes (Other)
  Sender: FDA-Public Use
  Company Number: HU-PFIZER INC-2012151126

PATIENT
  Age: 57 Year
  Sex: Female
  Weight: 116 kg

DRUGS (17)
  1. INSULIN DETEMIR [Concomitant]
     Dosage: UNK
  2. SPIRIVA [Concomitant]
     Dosage: UNK
     Dates: start: 20050101
  3. LYRICA [Suspect]
     Indication: NEURALGIA
     Dosage: 150 MG, 2X/DAY
     Dates: start: 20120201, end: 20120201
  4. EUTHYROX [Concomitant]
     Dosage: 50 UG, UNK
  5. SYMBICORT [Concomitant]
     Dosage: UNK
     Dates: start: 20050101
  6. CARVEDILOL [Concomitant]
     Dosage: 25 MG, UNK
  7. CYNT [Concomitant]
     Dosage: 0.4 MG, UNK
  8. NITROMINT [Concomitant]
     Dosage: UNK
     Dates: start: 20010101
  9. ZOCOR [Concomitant]
     Dosage: 20 UNK, UNK
  10. ADEXOR [Concomitant]
     Dosage: 35 MG, UNK
     Dates: start: 20010101
  11. FUROSEMIDE ^RATIOPHARM^ [Concomitant]
     Dosage: 40 MG, UNK
  12. POTASSIUM CHLORIDE [Concomitant]
     Dosage: 600 MG, UNK
  13. ALKCEMA [Concomitant]
     Dosage: UNK
  14. ASPIRIN [Concomitant]
     Dosage: 100 MG, UNK
  15. DOXAZOSIN [Concomitant]
     Dosage: 4 MG, UNK
  16. NOVORAPID [Concomitant]
     Dosage: UNK
  17. TRAMADOL HYDROCHLORIDE [Concomitant]
     Dosage: UNK

REACTIONS (7)
  - FEELING ABNORMAL [None]
  - DIZZINESS [None]
  - EYE PAIN [None]
  - DIARRHOEA [None]
  - GAIT DISTURBANCE [None]
  - ARTHRITIS [None]
  - BALANCE DISORDER [None]
